FAERS Safety Report 8163231-3 (Version None)
Quarter: 2012Q1

REPORT INFORMATION
  Report Type: 
  Country: None (occurrence: None)
  Receive Date: 20120224
  Receipt Date: 20110621
  Transmission Date: 20120608
  Serious: No
  Sender: FDA-Public Use
  Company Number: US-PFIZER INC-K201100762

PATIENT
  Age: 81 Year
  Sex: Male
  Weight: 86.168 kg

DRUGS (1)
  1. FLECTOR [Suspect]
     Indication: BACK INJURY
     Dosage: 1 PATCH, 12 HOURS QD
     Route: 061
     Dates: start: 20110620

REACTIONS (2)
  - FEELING ABNORMAL [None]
  - DRUG INEFFECTIVE [None]
